FAERS Safety Report 24180026 (Version 1)
Quarter: 2024Q3

REPORT INFORMATION
  Report Type: Report from Study
  Country: NL (occurrence: NL)
  Receive Date: 20240806
  Receipt Date: 20240806
  Transmission Date: 20241016
  Serious: Yes (Other)
  Sender: BIOVITRUM
  Company Number: NL-AstraZeneca-2021A905201

PATIENT
  Sex: Male
  Weight: 7.5 kg

DRUGS (1)
  1. SYNAGIS [Suspect]
     Active Substance: PALIVIZUMAB
     Indication: Heart disease congenital
     Dosage: MONTHLY
     Route: 030
     Dates: start: 20210928

REACTIONS (1)
  - Failure to thrive [Not Recovered/Not Resolved]
